FAERS Safety Report 5955789-7 (Version None)
Quarter: 2008Q4

REPORT INFORMATION
  Report Type: 
  Country: None (occurrence: None)
  Receive Date: 20081113
  Receipt Date: 20081031
  Transmission Date: 20090506
  Serious: Yes (Hospitalization)
  Sender: FDA-Public Use
  Company Number: 2008-03126

PATIENT
  Age: 43 Year
  Sex: Male
  Weight: 90 kg

DRUGS (8)
  1. VELCADE [Suspect]
     Indication: MULTIPLE MYELOMA
     Dosage: 1.3MG/M2, INTRAVENOUS
     Route: 042
     Dates: start: 20080303, end: 20080602
  2. VELCADE [Suspect]
  3. DEXAMETHASONE [Concomitant]
  4. THIAMINE (THIAMINE) [Concomitant]
  5. FOLIC ACID [Concomitant]
  6. PYRIDOXINE (PYRIDOXINE) [Concomitant]
  7. GABAPENTIN [Concomitant]
  8. ACYCLOVIR [Concomitant]

REACTIONS (2)
  - DRUG INEFFECTIVE [None]
  - RENAL FAILURE [None]
